FAERS Safety Report 7688902-4 (Version None)
Quarter: 2011Q3

REPORT INFORMATION
  Report Type: 
  Country: None (occurrence: None)
  Receive Date: 20110817
  Receipt Date: 20110803
  Transmission Date: 20111222
  Serious: Yes (Hospitalization)
  Sender: FDA-Public Use
  Company Number: PHEH2011US00835

PATIENT

DRUGS (1)
  1. FANAPT [Suspect]
     Dosage: 1 MG, BID

REACTIONS (1)
  - DISEASE PROGRESSION [None]
